FAERS Safety Report 8559272 (Version 3)
Quarter: 2013Q2

REPORT INFORMATION
  Report Type: Report from Study
  Country: FR (occurrence: FR)
  Receive Date: 20120511
  Receipt Date: 20130613
  Transmission Date: 20140414
  Serious: Yes (Life-Threatening, Hospitalization)
  Sender: FDA-Public Use
  Company Number: FR-CELGENEUS-056-21880-12051005

PATIENT
  Age: 64 Year
  Sex: Male

DRUGS (8)
  1. REVLIMID [Suspect]
     Indication: PLASMA CELL MYELOMA
     Route: 048
     Dates: start: 20110325
  2. REVLIMID [Suspect]
     Route: 048
     Dates: start: 20120505, end: 20120507
  3. REVLIMID [Suspect]
     Route: 048
     Dates: start: 20120605
  4. BORTEZOMIB [Suspect]
     Indication: PLASMA CELL MYELOMA
     Route: 065
     Dates: start: 20110325
  5. DEXAMETHASONE [Suspect]
     Indication: PLASMA CELL MYELOMA
     Route: 065
     Dates: start: 20110325
  6. APROVEL [Concomitant]
     Indication: HYPERTENSION
     Route: 048
     Dates: start: 200801
  7. METFORMIN [Concomitant]
     Indication: DIABETES MELLITUS
     Route: 048
     Dates: start: 200801
  8. RIVOTRIL [Concomitant]
     Indication: NEURALGIA
     Route: 048
     Dates: start: 20110607

REACTIONS (2)
  - Sepsis [Recovered/Resolved]
  - Neutropenia [Unknown]
